FAERS Safety Report 9888145 (Version 1)
Quarter: 2014Q1

REPORT INFORMATION
  Report Type: Spontaneous
  Country: US (occurrence: None)
  Receive Date: 20140210
  Receipt Date: 20140210
  Transmission Date: 20141002
  Serious: Yes (Disabling)
  Sender: FDA-Public Use
  Company Number: None

PATIENT
  Age: 14 Year
  Sex: Female
  Weight: 43.55 kg

DRUGS (2)
  1. FLUOXETINE [Suspect]
     Indication: ANXIETY
     Dosage: TAKEN BY MOUTH
     Dates: start: 20140112, end: 20140129
  2. FLUOXETINE [Suspect]
     Indication: DEPRESSION
     Dosage: TAKEN BY MOUTH
     Dates: start: 20140112, end: 20140129

REACTIONS (10)
  - Headache [None]
  - Oropharyngeal pain [None]
  - Fatigue [None]
  - Dizziness [None]
  - Ear infection [None]
  - Sinusitis [None]
  - Neoplasm [None]
  - Pain [None]
  - Panic attack [None]
  - Drug withdrawal syndrome [None]
